FAERS Safety Report 17742288 (Version 1)
Quarter: 2020Q2

REPORT INFORMATION
  Report Type: Spontaneous
  Country: US (occurrence: US)
  Receive Date: 20200504
  Receipt Date: 20200504
  Transmission Date: 20200714
  Serious: Yes (Hospitalization, Other)
  Sender: FDA-Public Use
  Company Number: US-PFIZER INC-2020174401

PATIENT
  Age: 40 Year
  Sex: Female
  Weight: 44 kg

DRUGS (2)
  1. LORAZEPAM. [Suspect]
     Active Substance: LORAZEPAM
     Dosage: UNK
  2. LYRICA [Suspect]
     Active Substance: PREGABALIN
     Dosage: UNK

REACTIONS (6)
  - Fall [Unknown]
  - Amnesia [Unknown]
  - Pain [Unknown]
  - Myocardial infarction [Unknown]
  - Weight decreased [Unknown]
  - Gluten sensitivity [Unknown]

NARRATIVE: CASE EVENT DATE: 2003
